FAERS Safety Report 6222074-8 (Version None)
Quarter: 2009Q2

REPORT INFORMATION
  Report Type: 
  Country: None (occurrence: None)
  Receive Date: 20090608
  Receipt Date: 20090608
  Transmission Date: 20091009
  Serious: Yes (Hospitalization)
  Sender: FDA-Public Use
  Company Number: None

PATIENT
  Sex: Male
  Weight: 53.3 kg

DRUGS (1)
  1. PEGASPARGASE [Suspect]
     Indication: ACUTE LEUKAEMIA
     Dosage: 3,750-4,000 UNITS X3 IM
     Route: 030
     Dates: start: 20090120, end: 20090320

REACTIONS (4)
  - APOLIPOPROTEIN ABNORMAL [None]
  - ENZYME ABNORMALITY [None]
  - HYPERTRIGLYCERIDAEMIA [None]
  - HYPOGLYCAEMIA [None]
